FAERS Safety Report 10380179 (Version 2)
Quarter: 2014Q3

REPORT INFORMATION
  Report Type: Spontaneous
  Country: IT (occurrence: IT)
  Receive Date: 20140813
  Receipt Date: 20140901
  Transmission Date: 20150326
  Serious: Yes (Other)
  Sender: FDA-Public Use
  Company Number: IT-BEH-2014044458

PATIENT
  Age: 47 Year
  Sex: Male

DRUGS (1)
  1. IVIG [Suspect]
     Active Substance: HUMAN IMMUNOGLOBULIN G
     Indication: GUILLAIN-BARRE SYNDROME
     Dosage: DOSE: 0.4 G/KG/DAY FOR 5 DAYS
     Route: 042

REACTIONS (1)
  - Drug ineffective [Recovering/Resolving]
